FAERS Safety Report 4439081-8 (Version None)
Quarter: 2004Q3

REPORT INFORMATION
  Report Type: 
  Country: None (occurrence: None)
  Receive Date: 20040830
  Receipt Date: 20040820
  Transmission Date: 20050211
  Serious: Yes (Other)
  Sender: FDA-Public Use
  Company Number: 2004-08-0130

PATIENT
  Age: 83 Year
  Sex: Male
  Weight: 70 kg

DRUGS (5)
  1. NASONEX [Suspect]
     Indication: RHINITIS SEASONAL
     Dosage: NASAL SPRAY
     Route: 045
     Dates: start: 20040802
  2. AERIUS (DESLORATADINE) TABLETS [Suspect]
     Indication: RHINITIS SEASONAL
     Dosage: ORAL
     Route: 048
     Dates: start: 20040802
  3. ACEBUTOLOL [Concomitant]
  4. LACIDIPINE [Concomitant]
  5. XALATAN [Concomitant]

REACTIONS (3)
  - CONDITION AGGRAVATED [None]
  - GLAUCOMA [None]
  - VISION BLURRED [None]
